FAERS Safety Report 4475423-5 (Version None)
Quarter: 2004Q4

REPORT INFORMATION
  Report Type: 
  Country: None (occurrence: None)
  Receive Date: 20041014
  Receipt Date: 20041014
  Transmission Date: 20050328
  Serious: Yes (Hospitalization)
  Sender: FDA-Public Use
  Company Number: None

PATIENT
  Age: 55 Year
  Sex: Female

DRUGS (8)
  1. TEMAZEPAM [Suspect]
     Indication: INSOMNIA
     Dosage: 15 MG Q HS [LONG TERM]
  2. FLUMAZENIL [Suspect]
     Indication: SOMNOLENCE
     Dosage: 0.2 MG IV X 2
     Route: 042
     Dates: start: 20040814
  3. TPA [Suspect]
     Indication: SOMNOLENCE
     Dosage: FEM DRIP
     Dates: start: 20040816
  4. SYNTHROID [Concomitant]
  5. LASIX [Concomitant]
  6. LOVENOX [Concomitant]
  7. VALIUM [Concomitant]
  8. AVELOX [Concomitant]

REACTIONS (10)
  - BLOODY DISCHARGE [None]
  - DEEP VEIN THROMBOSIS [None]
  - DEPRESSED LEVEL OF CONSCIOUSNESS [None]
  - GRAND MAL CONVULSION [None]
  - HAEMATOCRIT DECREASED [None]
  - HAEMOGLOBIN DECREASED [None]
  - HYPOTENSION [None]
  - HYPOTHERMIA [None]
  - SOMNOLENCE [None]
  - TACHYCARDIA [None]
